FAERS Safety Report 4497365-1 (Version None)
Quarter: 2004Q4

REPORT INFORMATION
  Report Type: 
  Country: None (occurrence: None)
  Receive Date: 20041104
  Receipt Date: 20041025
  Transmission Date: 20050328
  Serious: Yes (Other)
  Sender: FDA-Public Use
  Company Number: US-JNJFOC-20041007849

PATIENT
  Age: 54 Year
  Sex: Male

DRUGS (5)
  1. TYLENOL [Suspect]
     Indication: ARTHRALGIA
     Dosage: 500 MG, 1 IN 1 DAY, ORAL
     Route: 048
     Dates: start: 20041008, end: 20041021
  2. ZOCOR [Suspect]
     Indication: LOW DENSITY LIPOPROTEIN INCREASED
     Dosage: 10 MG, 1 IN 1 D, ORAL
     Route: 048
     Dates: start: 20020101
  3. WARFARIN SODIUM [Concomitant]
  4. ZANTAC [Concomitant]
  5. FLU SHOT (INFLUENZA VACCINE) [Concomitant]

REACTIONS (6)
  - COOMBS DIRECT TEST POSITIVE [None]
  - COOMBS INDIRECT TEST POSITIVE [None]
  - DRUG INTERACTION [None]
  - GALLBLADDER ENLARGEMENT [None]
  - JAUNDICE [None]
  - RED BLOOD CELL ABNORMALITY [None]
